FAERS Safety Report 25417856 (Version 1)
Quarter: 2025Q2

REPORT INFORMATION
  Report Type: Spontaneous
  Country: AU (occurrence: None)
  Receive Date: 20250609
  Receipt Date: 20250609
  Transmission Date: 20250716
  Serious: Yes (Hospitalization)
  Sender: FDA-CTU
  Company Number: None

PATIENT
  Age: 65 Year
  Sex: Female
  Weight: 70 kg

DRUGS (3)
  1. PRISTIQ EXTENDED-RELEASE [Suspect]
     Active Substance: DESVENLAFAXINE SUCCINATE
     Indication: Depression
     Dosage: FREQUENCY : DAILY;?
     Route: 048
  2. ANTACAND [Concomitant]
  3. VITAMIN D [Concomitant]
     Active Substance: VITAMIN D NOS

REACTIONS (14)
  - Electric shock sensation [None]
  - Anxiety [None]
  - Mental impairment [None]
  - Tic [None]
  - Job dissatisfaction [None]
  - Drug withdrawal syndrome [None]
  - Tic [None]
  - Tardive dyskinesia [None]
  - Fibromuscular dysplasia [None]
  - Dystonia [None]
  - Epilepsy [None]
  - Tourette^s disorder [None]
  - Akathisia [None]
  - Suicide attempt [None]

NARRATIVE: CASE EVENT DATE: 20160715
